FAERS Safety Report 5983283-6 (Version None)
Quarter: 2008Q4

REPORT INFORMATION
  Report Type: 
  Country: None (occurrence: None)
  Receive Date: 20081208
  Receipt Date: 20081202
  Transmission Date: 20090506
  Serious: Yes (Other)
  Sender: FDA-Public Use
  Company Number: US-BAYER-200812602BCC

PATIENT
  Age: 65 Year
  Sex: Female

DRUGS (3)
  1. ALEVE [Suspect]
     Indication: RHEUMATOID ARTHRITIS
     Route: 048
  2. IBUPROFEN TABLETS [Suspect]
     Indication: RHEUMATOID ARTHRITIS
     Route: 048
  3. ACETAMINOPHEN [Suspect]
     Indication: RHEUMATOID ARTHRITIS
     Route: 048

REACTIONS (1)
  - RENAL DISORDER [None]
